FAERS Safety Report 4778861-6 (Version None)
Quarter: 2005Q3

REPORT INFORMATION
  Report Type: 
  Country: None (occurrence: None)
  Receive Date: 20050922
  Receipt Date: 20050909
  Transmission Date: 20060218
  Serious: Yes (Hospitalization)
  Sender: FDA-Public Use
  Company Number: 310002M05ITA

PATIENT
  Age: 37 Year
  Sex: Female

DRUGS (2)
  1. GONAL-F [Suspect]
     Indication: INFERTILITY FEMALE
     Dosage: SUBCUTANEOUS
     Route: 058
     Dates: start: 20020201, end: 20050630
  2. DECAPEPTYL (GONADORELIN / 00486501/) [Concomitant]

REACTIONS (3)
  - ARTHRITIS [None]
  - BURSITIS [None]
  - PERIARTHRITIS [None]
